FAERS Safety Report 5287619-3 (Version None)
Quarter: 2007Q1

REPORT INFORMATION
  Report Type: 
  Country: None (occurrence: None)
  Receive Date: 20070124
  Receipt Date: 20051230
  Transmission Date: 20070707
  Serious: Yes (Other)
  Sender: FDA-Public Use
  Company Number: WAES 0601USA00019

PATIENT
  Age: 16 Year
  Sex: Male
  Weight: 79.3795 kg

DRUGS (1)
  1. INVANZ [Suspect]
     Indication: INFECTION
     Dosage: 1 GM/DAILY/IV
     Route: 042
     Dates: start: 20051224, end: 20051230

REACTIONS (1)
  - ALANINE AMINOTRANSFERASE INCREASED [None]
